FAERS Safety Report 20761408 (Version 1)
Quarter: 2022Q2

REPORT INFORMATION
  Report Type: Spontaneous
  Country: SA (occurrence: SA)
  Receive Date: 20220428
  Receipt Date: 20220428
  Transmission Date: 20220720
  Serious: Yes (Other)
  Sender: FDA-Public Use
  Company Number: SA-LUPIN PHARMACEUTICALS INC.-2022-06228

PATIENT
  Age: 6 Year
  Sex: Male

DRUGS (9)
  1. LEVETIRACETAM [Suspect]
     Active Substance: LEVETIRACETAM
     Indication: Epilepsia partialis continua
     Dosage: UNK
     Route: 065
  2. LORAZEPAM [Suspect]
     Active Substance: LORAZEPAM
     Indication: Epilepsia partialis continua
     Dosage: UNK
     Route: 065
  3. TOPIRAMATE [Suspect]
     Active Substance: TOPIRAMATE
     Indication: Epilepsia partialis continua
     Dosage: UNK
     Route: 065
  4. CLOBAZAM [Suspect]
     Active Substance: CLOBAZAM
     Indication: Epilepsia partialis continua
     Dosage: UNK
     Route: 065
  5. PHENOBARBITAL [Suspect]
     Active Substance: PHENOBARBITAL
     Indication: Epilepsia partialis continua
     Dosage: UNK
     Route: 065
  6. LEVOCARNITINE [Suspect]
     Active Substance: LEVOCARNITINE
     Indication: Epilepsia partialis continua
     Dosage: UNK
     Route: 065
  7. VITAMIN B6 [Suspect]
     Active Substance: PYRIDOXINE HYDROCHLORIDE
     Indication: Epilepsia partialis continua
     Dosage: UNK
     Route: 065
  8. MIDAZOLAM [Concomitant]
     Active Substance: MIDAZOLAM
     Indication: Epilepsia partialis continua
     Dosage: UNK (MIDAZOLAM DRIP)
     Route: 065
  9. MIDAZOLAM [Concomitant]
     Active Substance: MIDAZOLAM
     Dosage: 24 MICROGRAM PER KILOGRAM PER MINUTE(DRIP THAT WAS GRADUALLY INCREASED TO 24 MICROGRAMS/KG/MIN)
     Route: 065

REACTIONS (1)
  - Treatment failure [Unknown]
